FAERS Safety Report 23648551 (Version 1)
Quarter: 2024Q1

REPORT INFORMATION
  Report Type: Report from Study
  Country: CA (occurrence: CA)
  Receive Date: 20240319
  Receipt Date: 20240319
  Transmission Date: 20240410
  Serious: Yes (Death, Other)
  Sender: FDA-Public Use
  Company Number: CA-PFIZER INC-202400065722

PATIENT
  Age: 87 Year
  Sex: Male
  Weight: 70 kg

DRUGS (6)
  1. METHOTREXATE SODIUM [Suspect]
     Active Substance: METHOTREXATE SODIUM
     Indication: Pain in extremity
     Dosage: 25 MG, WEEKLY
     Route: 048
  2. METHOTREXATE SODIUM [Suspect]
     Active Substance: METHOTREXATE SODIUM
     Indication: Ankylosing spondylitis
  3. METHOTREXATE [Suspect]
     Active Substance: METHOTREXATE
     Indication: Pain in extremity
     Dosage: 20 MG, WEEKLY
     Route: 048
  4. METHOTREXATE [Suspect]
     Active Substance: METHOTREXATE
     Indication: Ankylosing spondylitis
  5. REMICADE [Suspect]
     Active Substance: INFLIXIMAB
     Indication: Ankylosing spondylitis
     Dosage: 400 MG, EVERY 6 WEEKS
     Route: 042
  6. REMICADE [Suspect]
     Active Substance: INFLIXIMAB
     Indication: Ankylosing spondylitis
     Dosage: 400 MG, EVERY 8 WEEKS
     Route: 042

REACTIONS (6)
  - Death [Fatal]
  - Nausea [Fatal]
  - Pain in extremity [Fatal]
  - Taste disorder [Fatal]
  - Therapeutic product effect incomplete [Fatal]
  - Weight decreased [Fatal]
